FAERS Safety Report 9150638 (Version 3)
Quarter: 2016Q3

REPORT INFORMATION
  Report Type: Spontaneous
  Country: US (occurrence: US)
  Receive Date: 20130308
  Receipt Date: 20160805
  Transmission Date: 20161109
  Serious: No
  Sender: FDA-Public Use
  Company Number: US-009507513-1303USA003521

PATIENT
  Sex: Female
  Weight: 74.47 kg

DRUGS (1)
  1. IMPLANON [Suspect]
     Active Substance: ETONOGESTREL
     Indication: PRODUCT USED FOR UNKNOWN INDICATION
     Dosage: 1 DF, EVERY 3 YEARS
     Route: 059
     Dates: start: 20091028

REACTIONS (2)
  - Incorrect drug administration duration [Unknown]
  - Complication associated with device [Unknown]

NARRATIVE: CASE EVENT DATE: 20121026
